FAERS Safety Report 12777931 (Version 1)
Quarter: 2016Q3

REPORT INFORMATION
  Report Type: Spontaneous
  Country: US (occurrence: US)
  Receive Date: 20160924
  Receipt Date: 20160924
  Transmission Date: 20161109
  Serious: No
  Sender: FDA-Public Use
  Company Number: US-JAZZ-2016-US-010923

PATIENT
  Sex: Female

DRUGS (53)
  1. XYREM [Suspect]
     Active Substance: SODIUM OXYBATE
     Indication: CATAPLEXY
     Dosage: DOSE ADJUSTMENTS
     Route: 048
     Dates: start: 201507, end: 201507
  2. XYREM [Suspect]
     Active Substance: SODIUM OXYBATE
     Dosage: 4.5 G, BID
     Route: 048
     Dates: start: 201507
  3. KETOTIFEN [Concomitant]
     Active Substance: KETOTIFEN
  4. XOLAIR [Concomitant]
     Active Substance: OMALIZUMAB
  5. CYCLOBENZAPRINE [Concomitant]
     Active Substance: CYCLOBENZAPRINE
  6. DEXILANT [Concomitant]
     Active Substance: DEXLANSOPRAZOLE
  7. HYDROXYZINE HCL [Concomitant]
     Active Substance: HYDROXYZINE HYDROCHLORIDE
  8. MODAFINIL. [Concomitant]
     Active Substance: MODAFINIL
  9. NASONEX [Concomitant]
     Active Substance: MOMETASONE FUROATE
  10. VAGIFEM [Concomitant]
     Active Substance: ESTRADIOL
  11. VITAMIN D [Concomitant]
     Active Substance: CHOLECALCIFEROL
  12. NEUPRO [Suspect]
     Active Substance: ROTIGOTINE
     Indication: MUSCLE TWITCHING
     Dosage: 2MG/24 HR
     Dates: start: 20160229, end: 20160630
  13. HORIZANT [Concomitant]
     Active Substance: GABAPENTIN ENACARBIL
  14. CLONAZEPAM. [Concomitant]
     Active Substance: CLONAZEPAM
  15. FIORICET [Concomitant]
     Active Substance: ACETAMINOPHEN\BUTALBITAL\CAFFEINE
  16. METHOCARBAMOL. [Concomitant]
     Active Substance: METHOCARBAMOL
  17. METAXALONE. [Concomitant]
     Active Substance: METAXALONE
  18. VIIBRYD [Concomitant]
     Active Substance: VILAZODONE HYDROCHLORIDE
  19. DOXYCYCLINE HYCLATE. [Concomitant]
     Active Substance: DOXYCYCLINE HYCLATE
  20. CRESTOR [Concomitant]
     Active Substance: ROSUVASTATIN CALCIUM
  21. DONNATAL [Concomitant]
     Active Substance: ATROPINE SULFATE\HYOSCYAMINE SULFATE\PHENOBARBITAL\SCOPOLAMINE HYDROBROMIDE
  22. SPIRONOLACTONE. [Concomitant]
     Active Substance: SPIRONOLACTONE
  23. MIRAPEX [Suspect]
     Active Substance: PRAMIPEXOLE DIHYDROCHLORIDE
     Indication: PRODUCT USED FOR UNKNOWN INDICATION
  24. XOPENEX HFA [Concomitant]
     Active Substance: LEVALBUTEROL TARTRATE
  25. BEPREVE [Concomitant]
     Active Substance: BEPOTASTINE BESILATE
  26. DEXAMETHASONE. [Concomitant]
     Active Substance: DEXAMETHASONE
  27. IRON [Concomitant]
     Active Substance: IRON
  28. OMEGA 3 FISH OIL [Concomitant]
     Active Substance: FISH OIL\OMEGA-3 FATTY ACIDS
  29. ADDERALL [Concomitant]
     Active Substance: AMPHETAMINE ASPARTATE\AMPHETAMINE SULFATE\DEXTROAMPHETAMINE SACCHARATE\DEXTROAMPHETAMINE SULFATE
  30. BUSPIRONE HCL [Concomitant]
     Active Substance: BUSPIRONE HYDROCHLORIDE
  31. FLUCONAZOLE. [Concomitant]
     Active Substance: FLUCONAZOLE
  32. GABAPENTIN. [Concomitant]
     Active Substance: GABAPENTIN
  33. MULTIVITAMINS [Concomitant]
     Active Substance: VITAMINS
  34. PREDNISONE. [Concomitant]
     Active Substance: PREDNISONE
  35. DILAUDID [Concomitant]
     Active Substance: HYDROMORPHONE HYDROCHLORIDE
  36. COQ10 [Concomitant]
     Active Substance: UBIDECARENONE
  37. NEXIUM [Concomitant]
     Active Substance: ESOMEPRAZOLE MAGNESIUM
  38. VIVELLE-DOT [Concomitant]
     Active Substance: ESTRADIOL
  39. NORCO [Concomitant]
     Active Substance: ACETAMINOPHEN\HYDROCODONE BITARTRATE
  40. XYREM [Suspect]
     Active Substance: SODIUM OXYBATE
     Indication: NARCOLEPSY
     Dosage: 2.25 G, BID
     Route: 048
     Dates: start: 201506, end: 201507
  41. NEUPRO [Suspect]
     Active Substance: ROTIGOTINE
     Dosage: 4MG/ 24 HR
     Dates: start: 20160121, end: 20160630
  42. CELEBREX [Concomitant]
     Active Substance: CELECOXIB
  43. HYDROCHLOROTHIAZIDE. [Concomitant]
     Active Substance: HYDROCHLOROTHIAZIDE
  44. MONTELUKAST SODIUM. [Concomitant]
     Active Substance: MONTELUKAST SODIUM
  45. MAGNESIUM GLUCONATE [Concomitant]
     Active Substance: MAGNESIUM GLUCONATE
  46. DULERA [Concomitant]
     Active Substance: FORMOTEROL FUMARATE DIHYDRATE\MOMETASONE FUROATE
  47. LEVOCETIRIZINE [Concomitant]
     Active Substance: LEVOCETIRIZINE
  48. LEVOTHYROXINE. [Concomitant]
     Active Substance: LEVOTHYROXINE
  49. METFORMIN HCL [Concomitant]
     Active Substance: METFORMIN HYDROCHLORIDE
  50. SINGULAIR [Concomitant]
     Active Substance: MONTELUKAST SODIUM
  51. FENTANYL. [Concomitant]
     Active Substance: FENTANYL
  52. VENTOLIN HFA [Concomitant]
     Active Substance: ALBUTEROL SULFATE
  53. BOTOX [Concomitant]
     Active Substance: ONABOTULINUMTOXINA

REACTIONS (4)
  - Unevaluable event [Unknown]
  - Feeling abnormal [Unknown]
  - Muscle twitching [Unknown]
  - Thinking abnormal [Unknown]
